FAERS Safety Report 5938593-5 (Version None)
Quarter: 2008Q4

REPORT INFORMATION
  Report Type: 
  Country: None (occurrence: None)
  Receive Date: 20081103
  Receipt Date: 20081023
  Transmission Date: 20090506
  Serious: Yes (Other)
  Sender: FDA-Public Use
  Company Number: CA-JNJFOC-20081006133

PATIENT
  Sex: Female
  Weight: 120.5 kg

DRUGS (4)
  1. REMICADE [Suspect]
     Dosage: TOTAL OF 9 DOSES
     Route: 042
  2. REMICADE [Suspect]
     Indication: CROHN'S DISEASE
     Route: 042
  3. BENADRYL [Concomitant]
     Indication: PREMEDICATION
     Route: 042
  4. SOLU-CORTEF [Concomitant]
     Indication: PREMEDICATION
     Route: 042

REACTIONS (5)
  - DIARRHOEA [None]
  - HAEMATOCHEZIA [None]
  - MALAISE [None]
  - MUSCLE SPASMS [None]
  - VOMITING [None]
